FAERS Safety Report 10403572 (Version 1)
Quarter: 2014Q3

REPORT INFORMATION
  Report Type: Spontaneous
  Country: AU (occurrence: AU)
  Receive Date: 20140822
  Receipt Date: 20140822
  Transmission Date: 20150326
  Serious: Yes (Other)
  Sender: FDA-Public Use
  Company Number: AU-ALLERGAN-1418061US

PATIENT
  Age: 73 Year
  Sex: Female

DRUGS (3)
  1. FUL GLO [Suspect]
     Active Substance: FLUORESCEIN SODIUM
  2. MYDRIACYL [Suspect]
     Active Substance: TROPICAMIDE
     Dosage: 1 DF, UNSPEC, ONE TIME
     Route: 047
     Dates: start: 19960628, end: 19960628
  3. OPHTHETIC [Suspect]
     Active Substance: PROPARACAINE HYDROCHLORIDE
     Indication: PRODUCT USED FOR UNKNOWN INDICATION
     Dosage: 1 UNK, UNK

REACTIONS (4)
  - Conjunctivitis [Recovered/Resolved]
  - Ulcerative keratitis [Recovered/Resolved]
  - Keratitis [Recovered/Resolved]
  - Eye pain [Recovered/Resolved]

NARRATIVE: CASE EVENT DATE: 19960628
